FAERS Safety Report 16669983 (Version 1)
Quarter: 2019Q3

REPORT INFORMATION
  Report Type: Report from Study
  Country: ES (occurrence: ES)
  Receive Date: 20190805
  Receipt Date: 20190805
  Transmission Date: 20191004
  Serious: Yes (Hospitalization, Other)
  Sender: FDA-Public Use
  Company Number: ES-GILEAD-2019-0421871

PATIENT
  Sex: Female
  Weight: 75 kg

DRUGS (2)
  1. AZTREONAM LYSINE [Suspect]
     Active Substance: AZTREONAM LYSINE
     Indication: INFECTION PROPHYLAXIS
     Dosage: 225 MG, TOTAL DAILY DOSE
     Route: 055
     Dates: start: 20190726, end: 20190728
  2. ENOXAPARIN [Concomitant]
     Active Substance: ENOXAPARIN
     Indication: PROPHYLAXIS
     Dosage: 40 MG, QD
     Route: 058
     Dates: start: 20170720

REACTIONS (1)
  - Bacteraemia [Unknown]

NARRATIVE: CASE EVENT DATE: 20190729
